FAERS Safety Report 4995719-8 (Version None)
Quarter: 2006Q2

REPORT INFORMATION
  Report Type: 
  Country: None (occurrence: None)
  Receive Date: 20060504
  Receipt Date: 20060501
  Transmission Date: 20061013
  Serious: Yes (Other)
  Sender: FDA-Public Use
  Company Number: 006659

PATIENT
  Age: 80 Year
  Sex: Female
  Weight: 63.5 kg

DRUGS (11)
  1. METHOTREXATE [Suspect]
     Indication: RHEUMATOID ARTHRITIS
     Dosage: 3 TABLET, WEEKLY, ORAL
     Route: 048
     Dates: start: 19980101, end: 20050801
  2. FOSAMAX [Suspect]
     Dosage: 1/WEEK, ORAL
     Route: 048
     Dates: end: 20050801
  3. PREDNISONE TAB [Concomitant]
  4. TYLENOL (CAPLET) [Concomitant]
  5. HYDROCHLORZIDE [Concomitant]
  6. TRIAMTERENE [Concomitant]
  7. TRIAMCINOLONE (TRIAMCINOLONE ACETONIDE) [Concomitant]
  8. MULTIVITAMINS (ERGOCALCIFEROL, PANTHENOL, NICOTINAMIDE, RIBOFLAVIN, TH [Concomitant]
  9. VITAMIN D [Concomitant]
  10. ASPIRIN [Concomitant]
  11. CALCIUM (CALCIUM) [Concomitant]

REACTIONS (17)
  - ABDOMINAL HERNIA [None]
  - ARTERIOSCLEROSIS [None]
  - BACK PAIN [None]
  - CERVICAL POLYP [None]
  - ENDOMETRIAL HYPERTROPHY [None]
  - HAEMORRHAGIC CYST [None]
  - HYDROMETRA [None]
  - INTERVERTEBRAL DISC DEGENERATION [None]
  - OSTEOARTHRITIS [None]
  - OVARIAN CYST [None]
  - PAIN IN EXTREMITY [None]
  - PELVIC MASS [None]
  - RENAL ARTERIOSCLEROSIS [None]
  - RENAL CYST [None]
  - SPINAL COLUMN STENOSIS [None]
  - UMBILICAL HERNIA [None]
  - VAGINAL HAEMORRHAGE [None]
